FAERS Safety Report 11070825 (Version 1)
Quarter: 2015Q2

REPORT INFORMATION
  Report Type: Report from Study
  Country: US (occurrence: US)
  Receive Date: 20150428
  Receipt Date: 20150428
  Transmission Date: 20150821
  Serious: Yes (Other)
  Sender: FDA-Public Use
  Company Number: US-ROCHE-1568749

PATIENT
  Sex: Female

DRUGS (1)
  1. ACTEMRA [Suspect]
     Active Substance: TOCILIZUMAB
     Indication: RHEUMATOID ARTHRITIS
     Dosage: RECEIVED ONE INFUSION OF 4MG/KG
     Route: 042
     Dates: start: 20141111

REACTIONS (2)
  - Skin exfoliation [Recovered/Resolved]
  - Dermatitis exfoliative [Recovered/Resolved]
